FAERS Safety Report 7719506-2 (Version None)
Quarter: 2011Q3

REPORT INFORMATION
  Report Type: 
  Country: None (occurrence: None)
  Receive Date: 20110830
  Receipt Date: 20110823
  Transmission Date: 20111222
  Serious: Yes (Hospitalization)
  Sender: FDA-Public Use
  Company Number: BR-MEDIMMUNE-MEDI-0013497

PATIENT
  Sex: Male
  Weight: 7 kg

DRUGS (2)
  1. SYNAGIS [Suspect]
     Indication: BRONCHOPULMONARY DYSPLASIA
  2. SYNAGIS [Suspect]
     Route: 030
     Dates: start: 20110406

REACTIONS (4)
  - BRONCHOPULMONARY DYSPLASIA [None]
  - SNEEZING [None]
  - INCREASED BRONCHIAL SECRETION [None]
  - FATIGUE [None]
